FAERS Safety Report 7679349-5 (Version None)
Quarter: 2011Q3

REPORT INFORMATION
  Report Type: 
  Country: None (occurrence: None)
  Receive Date: 20110812
  Receipt Date: 20110812
  Transmission Date: 20111222
  Serious: Yes (Hospitalization)
  Sender: FDA-Public Use
  Company Number: PHHO2009JP16104

PATIENT
  Sex: Female
  Weight: 39 kg

DRUGS (15)
  1. AMLODIPINE BESYLATE [Suspect]
     Indication: PNEUMONIA
     Dosage: 200 MG, BID
     Dates: start: 20051028, end: 20091225
  2. AZULFIDINE [Concomitant]
  3. PERSANTIN [Concomitant]
  4. PITAVASTATIN CALCIUM [Concomitant]
  5. ROHYPNOL [Concomitant]
  6. GLEEVEC [Suspect]
     Dosage: DOUBLE BLIND
     Route: 048
     Dates: start: 20091222
  7. BIOFERMIN [Concomitant]
  8. REVATIO [Concomitant]
  9. NORVASC [Concomitant]
  10. GLEEVEC [Suspect]
     Indication: PULMONARY ARTERIAL HYPERTENSION
     Dosage: 100 MG, UNK
     Route: 048
     Dates: start: 20091214, end: 20091217
  11. TRACLEER [Concomitant]
  12. BERAPROST SODIUM [Concomitant]
  13. LANSOPRAZOLE [Concomitant]
  14. CANDESARTAN CILEXETIL [Concomitant]
  15. LASIX [Concomitant]

REACTIONS (3)
  - BLOOD CREATININE INCREASED [None]
  - RENAL IMPAIRMENT [None]
  - BLOOD UREA INCREASED [None]
